FAERS Safety Report 22124104 (Version 1)
Quarter: 2023Q1

REPORT INFORMATION
  Report Type: Spontaneous
  Country: PL (occurrence: PL)
  Receive Date: 20230322
  Receipt Date: 20230322
  Transmission Date: 20230417
  Serious: Yes (Hospitalization, Other)
  Sender: FDA-Public Use
  Company Number: ALC2023PL001421

PATIENT

DRUGS (6)
  1. BSS [Suspect]
     Active Substance: CALCIUM CHLORIDE\MAGNESIUM CHLORIDE\POTASSIUM CHLORIDE\SODIUM ACETATE\SODIUM CHLORIDE\SODIUM CITRATE
     Indication: Phacocystectomy
     Dosage: UNK
     Route: 047
     Dates: start: 20211027
  2. HYALURONATE SODIUM [Suspect]
     Active Substance: HYALURONATE SODIUM
     Indication: Product used for unknown indication
     Dosage: UNK
     Route: 065
  3. LIDOCAINE HYDROCHLORIDE\PHENYLEPHRINE HYDROCHLORIDE\TROPICAMIDE [Suspect]
     Active Substance: LIDOCAINE HYDROCHLORIDE\PHENYLEPHRINE HYDROCHLORIDE\TROPICAMIDE
     Indication: Product used for unknown indication
     Dosage: UNK
     Route: 065
  4. TROPICAMIDE [Concomitant]
     Active Substance: TROPICAMIDE
     Indication: Product used for unknown indication
     Dosage: UNK
     Route: 065
  5. PHENYLEPHRINE [Concomitant]
     Active Substance: PHENYLEPHRINE HYDROCHLORIDE
     Indication: Product used for unknown indication
     Dosage: UNK
     Route: 065
  6. LIDOCAINE [Concomitant]
     Active Substance: LIDOCAINE
     Indication: Product used for unknown indication
     Dosage: UNK
     Route: 065

REACTIONS (1)
  - Corneal opacity [Recovered/Resolved]

NARRATIVE: CASE EVENT DATE: 20211027
